FAERS Safety Report 7005239-7 (Version None)
Quarter: 2010Q3

REPORT INFORMATION
  Report Type: 
  Country: None (occurrence: None)
  Receive Date: 20100920
  Receipt Date: 20100920
  Transmission Date: 20110219
  Serious: Yes (Hospitalization)
  Sender: FDA-Public Use
  Company Number: None

PATIENT
  Age: 65 Year
  Sex: Male
  Weight: 87.5442 kg

DRUGS (1)
  1. AMLODIPINE BESYLATE [Suspect]
     Indication: HYPERTENSION
     Dosage: 5 MG ONCE PER DAY PO
     Route: 048
     Dates: start: 20100807, end: 20100823

REACTIONS (2)
  - DIZZINESS [None]
  - PRODUCT SUBSTITUTION ISSUE [None]
